FAERS Safety Report 9051472 (Version 1)
Quarter: 2013Q1

REPORT INFORMATION
  Report Type: Spontaneous
  Country: US (occurrence: US)
  Receive Date: 20130206
  Receipt Date: 20130206
  Transmission Date: 20140127
  Serious: No
  Sender: FDA-Public Use
  Company Number: US-ALLERGAN-1213243US

PATIENT
  Age: 42 Year
  Sex: Female

DRUGS (6)
  1. RESTASIS? [Suspect]
     Indication: DRY EYE
     Dosage: 2 GTT, BID
     Route: 047
     Dates: start: 20120721, end: 20120914
  2. RESTASIS? [Suspect]
     Dosage: 2 GTT, UNK
     Route: 047
     Dates: start: 20120915
  3. ALVESCO [Concomitant]
     Indication: ASTHMA
     Dosage: UNK UNK, BID
     Route: 048
     Dates: start: 2012
  4. RESCUE INHALER [Concomitant]
     Indication: ASTHMA
     Dosage: UNK, PRN
     Route: 055
     Dates: start: 2012
  5. PREDNISOLONE ACETATE SUSPENSION 1% [Concomitant]
     Indication: DRY EYE
     Dosage: 2 GTT, QID
     Route: 047
     Dates: start: 20120721, end: 20120728
  6. PREDNISOLONE ACETATE SUSPENSION 1% [Concomitant]
     Dosage: 2 GTT, BID
     Route: 047
     Dates: start: 20120728

REACTIONS (6)
  - Inappropriate schedule of drug administration [Unknown]
  - Inappropriate schedule of drug administration [Unknown]
  - Anxiety [Recovered/Resolved]
  - Drug ineffective [Unknown]
  - Eye irritation [Recovered/Resolved]
  - Eye pruritus [Recovered/Resolved]
